FAERS Safety Report 10284654 (Version 2)
Quarter: 2014Q3

REPORT INFORMATION
  Report Type: Spontaneous
  Country: US (occurrence: US)
  Receive Date: 20140708
  Receipt Date: 20140724
  Transmission Date: 20150326
  Serious: Yes (Hospitalization, Disabling)
  Sender: FDA-Public Use
  Company Number: US-MYLANLABS-2014S1015548

PATIENT
  Age: 8 Decade
  Sex: Female
  Weight: 62.6 kg

DRUGS (14)
  1. IPRATROPIUM BROMIDE AND ALBUTEROL SULFATE [Suspect]
     Active Substance: ALBUTEROL SULFATE\IPRATROPIUM BROMIDE
     Indication: ASTHMA
     Dosage: 0.5MG/3.0MG
     Route: 055
     Dates: start: 201210, end: 20140214
  2. COMBIVENT [Concomitant]
     Active Substance: ALBUTEROL SULFATE\IPRATROPIUM BROMIDE
     Indication: ASTHMA
  3. ATIVAN [Concomitant]
     Active Substance: LORAZEPAM
  4. SPIRIVA [Suspect]
     Active Substance: TIOTROPIUM BROMIDE MONOHYDRATE
     Indication: ASTHMA
     Route: 055
     Dates: start: 201210
  5. SYMBICORT [Suspect]
     Active Substance: BUDESONIDE\FORMOTEROL FUMARATE DIHYDRATE
     Indication: ASTHMA
     Route: 055
     Dates: start: 201210
  6. MAGNESIUM CITRATE. [Concomitant]
     Active Substance: MAGNESIUM CITRATE
  7. CALCIUM [Concomitant]
     Active Substance: CALCIUM
  8. IPRATROPIUM BROMIDE AND ALBUTEROL SULFATE [Suspect]
     Active Substance: ALBUTEROL SULFATE\IPRATROPIUM BROMIDE
     Indication: OFF LABEL USE
     Dosage: 0.5MG/3.0MG
     Route: 055
     Dates: start: 201210, end: 20140214
  9. AVAPRO [Concomitant]
     Active Substance: IRBESARTAN
  10. POTASSIUM [Concomitant]
     Active Substance: POTASSIUM
     Dosage: KLOR CON POTASSIUM
  11. CARDIZEM [Concomitant]
     Active Substance: DILTIAZEM HYDROCHLORIDE
     Indication: HYPERTENSION
  12. BLOOD PRESSURE PILL [Concomitant]
     Dosage: REPORTEDLY TAKES ^11^ DIFFERENT BLOOD PRESSURE PILLS
  13. MINERAL SUPPLEMENTS [Concomitant]
     Active Substance: UNSPECIFIED INGREDIENT
     Dosage: CHELATION AND MINERAL POWDER
  14. CLONIDINE. [Concomitant]
     Active Substance: CLONIDINE

REACTIONS (6)
  - Activities of daily living impaired [Not Recovered/Not Resolved]
  - Hypoaesthesia [Recovered/Resolved]
  - Myocardial infarction [Recovered/Resolved]
  - Tachycardia [Recovering/Resolving]
  - Dyspnoea [Recovering/Resolving]
  - Adrenal disorder [Not Recovered/Not Resolved]

NARRATIVE: CASE EVENT DATE: 2013
